FAERS Safety Report 21960971 (Version 8)
Quarter: 2023Q2

REPORT INFORMATION
  Report Type: Spontaneous
  Country: AT (occurrence: AT)
  Receive Date: 20230207
  Receipt Date: 20230612
  Transmission Date: 20230721
  Serious: Yes (Hospitalization, Other)
  Sender: FDA-Public Use
  Company Number: AT-BAXTER-2023BAX011989

PATIENT
  Age: 67 Year
  Sex: Male
  Weight: 58 kg

DRUGS (26)
  1. DOXORUBICIN [Suspect]
     Active Substance: DOXORUBICIN
     Indication: Mantle cell lymphoma
     Dosage: START DATE: SEP-2019, STOP DATE: JAN-2022, UNK (DRUG SEPARATE DOSAGE NUMBER 1), (POWDER FOR INFUSION
     Route: 065
  2. CYCLOPHOSPHAMIDE [Suspect]
     Active Substance: CYCLOPHOSPHAMIDE
     Indication: Mantle cell lymphoma
     Dosage: START DATE: SEP-2019, STOP DATE: JAN-2022, UNK (DRUG SEPARATE DOSAGE NUMBER 1), PHARMACEUTICAL FORM:
     Route: 065
  3. IBRUTINIB [Suspect]
     Active Substance: IBRUTINIB
     Indication: Mantle cell lymphoma
     Dosage: START DATE: JUN-2022, STOP DATE: JUL-2022, UNK (DRUG SEPARATE DOSAGE NUMBER 1)
     Route: 048
  4. VENETOCLAX [Suspect]
     Active Substance: VENETOCLAX
     Indication: Mantle cell lymphoma
     Dosage: START DATE: JUN-2022, STOP DATE: JUL-2022, UNK (DRUG SEPARATE DOSAGE NUMBER 1)
     Route: 048
  5. CISPLATIN [Suspect]
     Active Substance: CISPLATIN
     Indication: Mantle cell lymphoma
     Dosage: UNK (DRUG SEPARATE DOSAGE NUMBER 1)
     Route: 065
  6. PREDNISOLONE [Suspect]
     Active Substance: PREDNISOLONE
     Indication: Mantle cell lymphoma
     Dosage: START DATE: SEP-2019, STOP DATE: JAN-2022, UNK (DRUG SEPARATE DOSAGE NUMBER 1)
     Route: 065
  7. CARMUSTINE [Suspect]
     Active Substance: CARMUSTINE
     Indication: Mantle cell lymphoma
     Dosage: UNK (DRUG SEPARATE DOSAGE NUMBER 1
     Route: 065
  8. MELPHALAN [Suspect]
     Active Substance: MELPHALAN
     Indication: Mantle cell lymphoma
     Dosage: UNK (DRUG SEPARATE DOSAGE NUMBER 1)
     Route: 065
  9. RITUXIMAB [Suspect]
     Active Substance: RITUXIMAB
     Indication: Mantle cell lymphoma
     Dosage: START DATE: SEP-2019, STOP DATE: DEC-2022, UNK (DRUG SEPARATE DOSAGE NUMBER 1)
     Route: 058
  10. RITUXIMAB [Suspect]
     Active Substance: RITUXIMAB
     Dosage: STOP DATE: DEC-2022, UNK (DRUG SEPARATE DOSAGE NUMBER 1)
     Route: 058
  11. CYTARABINE [Suspect]
     Active Substance: CYTARABINE
     Indication: Mantle cell lymphoma
     Dosage: UNK (DRUG SEPARATE DOSAGE NUMBER 1)
     Route: 065
  12. DEXAMETHASONE [Suspect]
     Active Substance: DEXAMETHASONE
     Indication: Mantle cell lymphoma
     Dosage: UNK (DRUG SEPARATE DOSAGE NUMBER 1), ORAL LIQUID DEXAMETHASOE)
     Route: 050
  13. ETOPOSIDE [Suspect]
     Active Substance: ETOPOSIDE
     Indication: Mantle cell lymphoma
     Dosage: UNK (DRUG SEPARATE DOSAGE NUMBER 1)
     Route: 065
  14. VINCRISTINE [Suspect]
     Active Substance: VINCRISTINE
     Indication: Mantle cell lymphoma
     Dosage: START DATE: SEP-2019, STOP DATE: JAN-2022, UNK (DRUG SEPARATE DOSAGE NUMBER 1)
     Route: 065
  15. GLOFITAMAB [Suspect]
     Active Substance: GLOFITAMAB
     Indication: Mantle cell lymphoma
     Dosage: 30 MG, Q3W
     Route: 042
     Dates: start: 20230131, end: 20230411
  16. AMLODIPINE [Concomitant]
     Active Substance: AMLODIPINE BESYLATE
     Indication: Hypertension
     Dosage: 10 MG
     Route: 065
  17. Temesta [Concomitant]
     Route: 065
  18. CALCIUM CARBONATE\CHOLECALCIFEROL [Concomitant]
     Active Substance: CALCIUM CARBONATE\CHOLECALCIFEROL
     Indication: Prophylaxis
     Dosage: 1 TAB
     Route: 065
  19. TAMSULOSIN HYDROCHLORIDE [Concomitant]
     Active Substance: TAMSULOSIN HYDROCHLORIDE
     Route: 065
  20. ACETAMINOPHEN [Concomitant]
     Active Substance: ACETAMINOPHEN
     Route: 065
  21. CHOLECALCIFEROL [Concomitant]
     Active Substance: CHOLECALCIFEROL
     Route: 065
  22. VALACYCLOVIR HYDROCHLORIDE [Concomitant]
     Active Substance: VALACYCLOVIR HYDROCHLORIDE
     Route: 065
  23. Acemin [Concomitant]
     Indication: Hypertension
     Dosage: 5 MG, QD
     Route: 065
  24. PANTOPRAZOLE SODIUM [Concomitant]
     Active Substance: PANTOPRAZOLE SODIUM
     Route: 065
  25. Paspertin [Concomitant]
     Route: 065
  26. EUTHYROX [Concomitant]
     Active Substance: LEVOTHYROXINE SODIUM
     Indication: Hypothyroidism
     Dosage: 50 UG, QD
     Route: 065

REACTIONS (4)
  - Large intestine perforation [Recovered/Resolved]
  - Disease progression [Unknown]
  - Mantle cell lymphoma [Unknown]
  - Blood lactate dehydrogenase increased [Unknown]

NARRATIVE: CASE EVENT DATE: 20230211
